FAERS Safety Report 12135014 (Version 2)
Quarter: 2016Q2

REPORT INFORMATION
  Report Type: Report from Study
  Country: NL (occurrence: NL)
  Receive Date: 20160301
  Receipt Date: 20160602
  Transmission Date: 20160815
  Serious: Yes (Other)
  Sender: FDA-Public Use
  Company Number: NL-ABBVIE-16P-114-1569001-00

PATIENT
  Weight: 68 kg

DRUGS (1)
  1. DUODOPA [Suspect]
     Active Substance: CARBIDOPA\LEVODOPA
     Indication: PARKINSON^S DISEASE
     Dosage: MD 4.2, CONTDOSE 5.0, ED 4.2-4.0, ND 3.5
     Route: 050
     Dates: start: 20110302

REACTIONS (7)
  - Migraine [Unknown]
  - Off label use [Not Recovered/Not Resolved]
  - Bedridden [Unknown]
  - Paresis [Recovered/Resolved with Sequelae]
  - Hypotension [Not Recovered/Not Resolved]
  - Transient ischaemic attack [Recovered/Resolved with Sequelae]
  - Disturbance in attention [Not Recovered/Not Resolved]

NARRATIVE: CASE EVENT DATE: 2012
